FAERS Safety Report 12993957 (Version 1)
Quarter: 2016Q4

REPORT INFORMATION
  Report Type: Spontaneous
  Country: US (occurrence: US)
  Receive Date: 20161201
  Receipt Date: 20161201
  Transmission Date: 20170207
  Serious: Yes (Life-Threatening, Hospitalization)
  Sender: FDA-Public Use
  Company Number: None

PATIENT
  Age: 61 Year
  Sex: Male
  Weight: 86.85 kg

DRUGS (8)
  1. REMICADE [Suspect]
     Active Substance: INFLIXIMAB
     Indication: COLITIS ULCERATIVE
     Dosage: ?          OTHER FREQUENCY:TWO WEEKS;?
     Route: 042
     Dates: start: 20161107, end: 20161122
  2. XARELTO [Concomitant]
     Active Substance: RIVAROXABAN
  3. TYLENOL [Concomitant]
     Active Substance: ACETAMINOPHEN
  4. VITAMIN D3 [Concomitant]
     Active Substance: CHOLECALCIFEROL
  5. SULFASALAZINE. [Suspect]
     Active Substance: SULFASALAZINE
     Indication: COLITIS ULCERATIVE
     Dosage: ?          QUANTITY:1 TABLET(S);?
     Route: 048
     Dates: start: 20150729, end: 20151128
  6. PREDNIZONE [Concomitant]
  7. PROBIOTICS [Concomitant]
     Active Substance: PROBIOTICS NOS
  8. CALCIUM [Concomitant]
     Active Substance: CALCIUM

REACTIONS (13)
  - Alopecia [None]
  - Immune system disorder [None]
  - Joint swelling [None]
  - Irritability [None]
  - Increased appetite [None]
  - Atypical pneumonia [None]
  - Heart rate increased [None]
  - Nasopharyngitis [None]
  - Muscular weakness [None]
  - Peripheral swelling [None]
  - Dyspnoea exertional [None]
  - Insomnia [None]
  - Weight increased [None]

NARRATIVE: CASE EVENT DATE: 20151008
